FAERS Safety Report 10015372 (Version 1)
Quarter: 2014Q1

REPORT INFORMATION
  Report Type: Spontaneous
  Country: US (occurrence: US)
  Receive Date: 20140317
  Receipt Date: 20140317
  Transmission Date: 20141002
  Serious: Yes (Other)
  Sender: FDA-Public Use
  Company Number: US-PFIZER INC-2014076556

PATIENT
  Age: 59 Year
  Sex: Male
  Weight: 83.9 kg

DRUGS (1)
  1. VENLAFAXINE HCL [Suspect]
     Indication: DEPRESSION
     Dosage: 150 MG, DAILY
     Dates: start: 2013, end: 2014

REACTIONS (1)
  - Convulsion [Recovered/Resolved]
